FAERS Safety Report 6805653-6 (Version None)
Quarter: 2010Q2

REPORT INFORMATION
  Report Type: 
  Country: None (occurrence: None)
  Receive Date: 20100628
  Receipt Date: 20080506
  Transmission Date: 20101027
  Serious: No
  Sender: FDA-Public Use
  Company Number: US-PFIZER INC-2008004795

PATIENT
  Sex: Male

DRUGS (5)
  1. CADUET [Suspect]
  2. ASPIRIN [Concomitant]
  3. VITAMINS [Concomitant]
  4. GLUCOSAMINE [Concomitant]
  5. BENICAR [Concomitant]

REACTIONS (1)
  - CIRCUMSTANCE OR INFORMATION CAPABLE OF LEADING TO MEDICATION ERROR [None]
